FAERS Safety Report 15302908 (Version 4)
Quarter: 2018Q3

REPORT INFORMATION
  Report Type: Spontaneous
  Country: DE (occurrence: DE)
  Receive Date: 20180821
  Receipt Date: 20180827
  Transmission Date: 20181010
  Serious: Yes (Other)
  Sender: FDA-Public Use
  Company Number: PHHY2018DE042135

PATIENT
  Age: 35 Year
  Sex: Female

DRUGS (9)
  1. DAPSONE. [Concomitant]
     Active Substance: DAPSONE
     Indication: IMMUNOMODULATORY THERAPY
     Dosage: 100 MG, QD
     Route: 065
     Dates: start: 201704, end: 201704
  2. DAPSONE. [Concomitant]
     Active Substance: DAPSONE
     Indication: HERPES GESTATIONIS
     Dosage: 10 MG, QD
     Route: 065
  3. PREDNISOLONE. [Concomitant]
     Active Substance: PREDNISOLONE
     Indication: HERPES GESTATIONIS
     Dosage: 30 MG, QD (0.5 MG/KG BODY WEIGHT)
     Route: 048
  4. DESOGESTREL [Suspect]
     Active Substance: DESOGESTREL
     Indication: MENSTRUATION IRREGULAR
     Dosage: UNK
     Route: 048
  5. PREDNISOLONE. [Concomitant]
     Active Substance: PREDNISOLONE
     Dosage: 7.5 MG, QD
     Route: 048
  6. PREDNISOLONE. [Concomitant]
     Active Substance: PREDNISOLONE
     Dosage: 60 MG, QD
     Route: 048
  7. PREDNISOLONE. [Concomitant]
     Active Substance: PREDNISOLONE
     Dosage: 10 MG, QD
     Route: 048
  8. ETHINYLESTRADIOL [Suspect]
     Active Substance: ETHINYL ESTRADIOL
     Indication: MENSTRUATION IRREGULAR
     Dosage: CONTRACEPTIVE PATCH
     Route: 065
     Dates: end: 201608
  9. GESTODENE [Suspect]
     Active Substance: GESTODENE
     Indication: MENSTRUATION IRREGULAR
     Dosage: CONTRACEPTIVE PATCH
     Route: 065
     Dates: end: 201608

REACTIONS (9)
  - Off label use [Unknown]
  - Pruritus [Recovering/Resolving]
  - Blister [Recovering/Resolving]
  - Papule [Recovering/Resolving]
  - Rash erythematous [Recovering/Resolving]
  - Herpes gestationis [Recovered/Resolved]
  - Skin lesion [Recovering/Resolving]
  - Condition aggravated [Recovered/Resolved]
  - Product use in unapproved indication [Unknown]

NARRATIVE: CASE EVENT DATE: 201604
